FAERS Safety Report 10426310 (Version 1)
Quarter: 2014Q3

REPORT INFORMATION
  Report Type: Spontaneous
  Country: AU (occurrence: AU)
  Receive Date: 20140903
  Receipt Date: 20140903
  Transmission Date: 20150326
  Serious: Yes (Death, Hospitalization)
  Sender: FDA-Public Use
  Company Number: AU-009507513-1408AUS015387

PATIENT
  Age: 60 Year
  Sex: Male

DRUGS (4)
  1. CITALOPRAM HYDROBROMIDE. [Concomitant]
     Active Substance: CITALOPRAM HYDROBROMIDE
     Route: 048
  2. RIBAVIRIN. [Suspect]
     Active Substance: RIBAVIRIN
     Indication: CHRONIC HEPATITIS C
     Dosage: 1.2 GRAM, TWICE DAILY
     Route: 048
     Dates: start: 20130607, end: 20140509
  3. PEGASYS [Suspect]
     Active Substance: PEGINTERFERON ALFA-2A
     Indication: CHRONIC HEPATITIS C
     Dosage: 180 MICROGRAM, QW
     Route: 058
     Dates: start: 20130607, end: 20140509
  4. TELAPREVIR [Suspect]
     Active Substance: TELAPREVIR
     Indication: CHRONIC HEPATITIS C
     Dosage: 30 MG DAILY
     Route: 048
     Dates: start: 20130607, end: 20130830

REACTIONS (5)
  - Ascites [Unknown]
  - Pulmonary oedema [Unknown]
  - Atypical pneumonia [Fatal]
  - Disease progression [Unknown]
  - Atelectasis [Unknown]

NARRATIVE: CASE EVENT DATE: 20140415
